FAERS Safety Report 10843533 (Version 1)
Quarter: 2015Q1

REPORT INFORMATION
  Report Type: Spontaneous
  Country: US (occurrence: US)
  Receive Date: 20150220
  Receipt Date: 20150220
  Transmission Date: 20150721
  Serious: Yes (Other)
  Sender: FDA-Public Use
  Company Number: US-ABBVIE-14P-163-1285808-00

PATIENT
  Sex: Female

DRUGS (2)
  1. HUMIRA [Suspect]
     Active Substance: ADALIMUMAB
     Indication: PRODUCT USED FOR UNKNOWN INDICATION
  2. SIMPONI [Concomitant]
     Active Substance: GOLIMUMAB
     Indication: CROHN^S DISEASE
     Dates: start: 2009

REACTIONS (1)
  - Lupus-like syndrome [Unknown]
